FAERS Safety Report 12948624 (Version 2)
Quarter: 2016Q4

REPORT INFORMATION
  Report Type: Spontaneous
  Country: US (occurrence: US)
  Receive Date: 20161116
  Receipt Date: 20161125
  Transmission Date: 20170207
  Serious: Yes (Other)
  Sender: FDA-Public Use
  Company Number: US-JNJFOC-20161110581

PATIENT
  Age: 72 Year
  Sex: Female

DRUGS (1)
  1. XARELTO [Suspect]
     Active Substance: RIVAROXABAN
     Indication: THROMBOSIS
     Route: 048
     Dates: start: 20150501, end: 2015

REACTIONS (4)
  - Rash [Unknown]
  - Pulmonary embolism [Unknown]
  - Breast pain [Unknown]
  - Formication [Unknown]

NARRATIVE: CASE EVENT DATE: 201505
